FAERS Safety Report 25167037 (Version 1)
Quarter: 2025Q2

REPORT INFORMATION
  Report Type: Report from Study
  Country: US (occurrence: US)
  Receive Date: 20250407
  Receipt Date: 20250407
  Transmission Date: 20250717
  Serious: Yes (Other)
  Sender: UCB
  Company Number: US-UCBSA-2025019731

PATIENT
  Age: 13 Year
  Sex: Male
  Weight: 37.7 kg

DRUGS (1)
  1. FINTEPLA [Suspect]
     Active Substance: FENFLURAMINE
     Indication: Severe myoclonic epilepsy of infancy

REACTIONS (2)
  - Tricuspid valve incompetence [Unknown]
  - Pulmonary valve incompetence [Unknown]

NARRATIVE: CASE EVENT DATE: 20250328
